FAERS Safety Report 5093816-2 (Version None)
Quarter: 2006Q3

REPORT INFORMATION
  Report Type: 
  Country: None (occurrence: None)
  Receive Date: 20060831
  Receipt Date: 20060823
  Transmission Date: 20061208
  Serious: Yes (Hospitalization)
  Sender: FDA-Public Use
  Company Number: PHBS2006US12778

PATIENT
  Age: 50 Year
  Sex: Male

DRUGS (9)
  1. TERBINAFINE [Suspect]
     Indication: ONYCHOMYCOSIS
     Dosage: 250 MG/DAY
  2. BUPROPION HCL [Concomitant]
     Indication: BIPOLAR DISORDER
     Dosage: 300 MG/DAY
  3. QUETIAPINE [Concomitant]
     Indication: BIPOLAR DISORDER
     Dosage: 300 MG/DAY
  4. HYDROCHLOROTHIAZIDE [Concomitant]
     Indication: HYPERTENSION
     Dosage: 25 MG/DAY
  5. OMEPRAZOLE [Concomitant]
     Indication: GASTROOESOPHAGEAL REFLUX DISEASE
     Dosage: 20 MG/DAY
  6. SILDENAFIL CITRATE [Concomitant]
     Indication: ERECTILE DYSFUNCTION
     Dosage: 50 MG/DAY
  7. CARBAMAZEPINE [Suspect]
     Indication: BIPOLAR DISORDER
     Dosage: 900 MG/DAY
  8. CARBAMAZEPINE [Suspect]
     Dosage: 600 MG/DAY
  9. CARBAMAZEPINE [Suspect]
     Dosage: 900 MG/DAY

REACTIONS (15)
  - ALANINE AMINOTRANSFERASE INCREASED [None]
  - ASPARTATE AMINOTRANSFERASE INCREASED [None]
  - DIPLOPIA [None]
  - DIZZINESS [None]
  - DRUG INTERACTION [None]
  - DRUG LEVEL ABOVE THERAPEUTIC [None]
  - DRUG TOXICITY [None]
  - FALL [None]
  - HYPOAESTHESIA FACIAL [None]
  - NAIL DISCOLOURATION [None]
  - NAIL HYPERTROPHY [None]
  - NYSTAGMUS [None]
  - ONYCHOCLASIS [None]
  - ONYCHOMYCOSIS [None]
  - VISION BLURRED [None]
